FAERS Safety Report 19950084 (Version 3)
Quarter: 2021Q4

REPORT INFORMATION
  Report Type: Spontaneous
  Country: US (occurrence: US)
  Receive Date: 20211013
  Receipt Date: 20211207
  Transmission Date: 20220303
  Serious: Yes (Death)
  Sender: FDA-Public Use
  Company Number: US-CELGENE-USA-20211002927

PATIENT
  Age: 82 Year
  Sex: Male

DRUGS (3)
  1. REVLIMID [Suspect]
     Active Substance: LENALIDOMIDE
     Indication: Myelodysplastic syndrome
     Dosage: 10 MILLIGRAM
     Route: 048
     Dates: start: 20191205
  2. REVLIMID [Suspect]
     Active Substance: LENALIDOMIDE
     Indication: Off label use
     Dosage: 10 MILLIGRAM
     Route: 048
     Dates: start: 20210820, end: 20211008
  3. ARANESP [Concomitant]
     Active Substance: DARBEPOETIN ALFA
     Indication: Myelodysplastic syndrome
     Dosage: SC/G/4DAYS
     Route: 058
     Dates: start: 20210816, end: 20210927

REACTIONS (1)
  - Death [Fatal]

NARRATIVE: CASE EVENT DATE: 20211008
